FAERS Safety Report 4836046-9 (Version None)
Quarter: 2005Q4

REPORT INFORMATION
  Report Type: 
  Country: None (occurrence: None)
  Receive Date: 20051123
  Receipt Date: 20051026
  Transmission Date: 20060501
  Serious: Yes (Other)
  Sender: FDA-Public Use
  Company Number: JP-MERCK-0510USA09967

PATIENT
  Age: 46 Year
  Sex: Male
  Weight: 102 kg

DRUGS (2)
  1. SINGULAIR [Suspect]
     Indication: ASTHMA
     Route: 048
     Dates: start: 20051008, end: 20051022
  2. UNIPHYL [Concomitant]
     Indication: ASTHMA
     Route: 048
     Dates: start: 20051008, end: 20051022

REACTIONS (1)
  - ANAPHYLACTIC REACTION [None]
